FAERS Safety Report 5151430-4 (Version None)
Quarter: 2006Q4

REPORT INFORMATION
  Report Type: 
  Country: None (occurrence: None)
  Receive Date: 20061115
  Receipt Date: 20060809
  Transmission Date: 20070319
  Serious: Yes (Hospitalization, Other)
  Sender: FDA-Public Use
  Company Number: US-NOVOPROD-255977

PATIENT
  Sex: Female
  Weight: 102.4 kg

DRUGS (2)
  1. NOVOLIN R [Suspect]
     Dosage: SLIDING SCALE
     Route: 058
     Dates: start: 20060601
  2. AVANDIA [Concomitant]
     Indication: INSULIN-REQUIRING TYPE II DIABETES MELLITUS
     Route: 048

REACTIONS (6)
  - BLOOD GLUCOSE INCREASED [None]
  - EXPIRED DRUG ADMINISTERED [None]
  - KIDNEY INFECTION [None]
  - PHARMACEUTICAL PRODUCT COMPLAINT [None]
  - RENAL HAEMORRHAGE [None]
  - URINE KETONE BODY [None]
